FAERS Safety Report 10510871 (Version 1)
Quarter: 2014Q4

REPORT INFORMATION
  Report Type: Spontaneous
  Country: IN (occurrence: None)
  Receive Date: 20141008
  Receipt Date: 20141008
  Transmission Date: 20150528
  Serious: Yes (Other)
  Sender: FDA-Public Use
  Company Number: IN-ALKEM-000731

PATIENT
  Age: 35 Year
  Sex: Female

DRUGS (2)
  1. AMLODIPINE [Suspect]
     Active Substance: AMLODIPINE BESYLATE
     Dosage: 100.00000000-DOSAGE
  2. ATENOLOL (ATENOLOL) [Suspect]
     Active Substance: ATENOLOL
     Dosage: 100.00000000-DOSAGE

REACTIONS (9)
  - Tachycardia [None]
  - Electrolyte imbalance [None]
  - Atrioventricular block second degree [None]
  - Acute kidney injury [None]
  - Suicidal ideation [None]
  - Hypotension [None]
  - Intentional overdose [None]
  - Tachypnoea [None]
  - Metabolic acidosis [None]
